FAERS Safety Report 9515228 (Version 2)
Quarter: 2014Q1

REPORT INFORMATION
  Report Type: Spontaneous
  Country: US (occurrence: None)
  Receive Date: 20130305
  Receipt Date: 20140306
  Transmission Date: 20141002
  Serious: Yes (Hospitalization)
  Sender: FDA-Public Use
  Company Number: 163-21880-12113911

PATIENT
  Age: 68 Year
  Sex: Male

DRUGS (9)
  1. REVLIMID (LENALIDOMIDE) (10 MILLIGRAM, CAPSULES) [Suspect]
     Indication: MYELODYSPLASTIC SYNDROME
     Dosage: 10 MG, 1 IN 1 D, PO
     Route: 048
     Dates: start: 201112
  2. ARANESP (DARBEPOETIN ALFA) [Concomitant]
  3. ASPIRIN [Concomitant]
  4. COREG (CARVEDILOL) [Concomitant]
  5. EXJADE (DEFERASIROX) [Concomitant]
  6. FLUOCINOLONE ACETONIDE (FLUOCINOLONE ACETONIDE) [Concomitant]
  7. FOLIC ACID (FOLIC ACID) [Concomitant]
  8. HYDROCHLOROTHIAZIDE (HYDROCHLOROTHIAZIDE) [Concomitant]
  9. ISOSORBIDE MONONITRATE (ISOSORBIDE MONITRATE) [Concomitant]

REACTIONS (2)
  - Splenic vein thrombosis [None]
  - Syncope [None]
